FAERS Safety Report 6608080-X (Version None)
Quarter: 2010Q1

REPORT INFORMATION
  Report Type: 
  Country: None (occurrence: None)
  Receive Date: 20100301
  Receipt Date: 20100222
  Transmission Date: 20100710
  Serious: Yes (Death)
  Sender: FDA-Public Use
  Company Number: CHPA2010US03800

PATIENT
  Age: 49 Year
  Sex: Male

DRUGS (10)
  1. DIPHENHYDRAMINE (NCH) [Suspect]
  2. QUETIAPINE [Suspect]
  3. ^BETA BLOCKER^ [Suspect]
  4. BUPROPION HCL [Suspect]
  5. TOPIRAMATE [Suspect]
  6. LISINOPRIL [Suspect]
  7. TIZANIDINE HCL [Suspect]
  8. MIRTAZAPINE [Suspect]
  9. TAMSULOSIN HCL [Suspect]
  10. COCAINE [Suspect]

REACTIONS (1)
  - COMPLETED SUICIDE [None]
